FAERS Safety Report 18525683 (Version 1)
Quarter: 2020Q4

REPORT INFORMATION
  Report Type: Spontaneous
  Country: JP (occurrence: JP)
  Receive Date: 20201119
  Receipt Date: 20201119
  Transmission Date: 20210114
  Serious: Yes (Hospitalization, Other)
  Sender: FDA-Public Use
  Company Number: JP-BAXTER-2020BAX023341

PATIENT
  Age: 3 Year
  Sex: Female

DRUGS (12)
  1. ENDOXAN 1G [Suspect]
     Active Substance: CYCLOPHOSPHAMIDE
     Indication: CHEMOTHERAPY
     Dosage: FIRST CYCLE
     Route: 041
     Dates: start: 20200901, end: 20200903
  2. ENDOXAN 1G [Suspect]
     Active Substance: CYCLOPHOSPHAMIDE
     Dosage: SECOND AND THIRD CYCLE
     Route: 041
  3. CISPLATIN. [Suspect]
     Active Substance: CISPLATIN
     Indication: CHEMOTHERAPY
     Dosage: FIRST CYCLE
     Route: 041
     Dates: start: 20200903, end: 20200903
  4. UROMITEXAN 400 MG [Suspect]
     Active Substance: MESNA
     Indication: PRODUCT USED FOR UNKNOWN INDICATION
     Dosage: FIRST CYCLE
     Route: 065
  5. METHOTREXATE. [Suspect]
     Active Substance: METHOTREXATE
     Indication: CHEMOTHERAPY
     Dosage: FIRST CYCLE,?ROUTE: MY
     Route: 050
     Dates: start: 20200901, end: 20200904
  6. METHOTREXATE. [Suspect]
     Active Substance: METHOTREXATE
     Route: 041
     Dates: start: 20200908, end: 20200909
  7. ONCOVIN [Suspect]
     Active Substance: VINCRISTINE SULFATE
     Dosage: SECOND AND THIRD CYCLE
     Route: 042
  8. CISPLATIN. [Suspect]
     Active Substance: CISPLATIN
     Dosage: SECOND AND THIRD CYCLE
     Route: 041
  9. UROMITEXAN 400 MG [Suspect]
     Active Substance: MESNA
     Dosage: SECOND AND THIRD CYCLE
     Route: 065
  10. ONCOVIN [Suspect]
     Active Substance: VINCRISTINE SULFATE
     Indication: CHEMOTHERAPY
     Dosage: FIRST CYCLE
     Route: 042
     Dates: start: 20200901, end: 20200901
  11. METHOTREXATE. [Suspect]
     Active Substance: METHOTREXATE
     Dosage: SECOND AND THIRD CYCLE?ROUTE: MY
     Route: 050
  12. SAXIZON [Concomitant]
     Active Substance: HYDROCORTISONE SODIUM SUCCINATE
     Indication: PRODUCT USED FOR UNKNOWN INDICATION
     Route: 065

REACTIONS (4)
  - Venous occlusion [Not Recovered/Not Resolved]
  - Febrile neutropenia [Recovering/Resolving]
  - Urine output decreased [Unknown]
  - Venoocclusive liver disease [Not Recovered/Not Resolved]

NARRATIVE: CASE EVENT DATE: 20200911
